FAERS Safety Report 18200461 (Version 1)
Quarter: 2020Q3

REPORT INFORMATION
  Report Type: Spontaneous
  Country: CA (occurrence: CA)
  Receive Date: 20200827
  Receipt Date: 20200827
  Transmission Date: 20201103
  Serious: Yes (Life-Threatening, Other)
  Sender: FDA-Public Use
  Company Number: CA-TEVA-2020-CA-1818035

PATIENT
  Age: 11 Month
  Sex: Female
  Weight: 9 kg

DRUGS (12)
  1. VANCOMYCIN [Suspect]
     Active Substance: VANCOMYCIN
     Route: 042
  2. PIPERACILLIN AND TAZOBACTAM [Concomitant]
     Active Substance: PIPERACILLIN SODIUM\TAZOBACTAM SODIUM
  3. PENICILLIN [Concomitant]
     Active Substance: PENICILLIN
  4. NAPROXEN. [Concomitant]
     Active Substance: NAPROXEN
  5. AMOXICILLIN. [Concomitant]
     Active Substance: AMOXICILLIN
  6. FENTANYL. [Suspect]
     Active Substance: FENTANYL
     Indication: SEDATION
     Route: 042
  7. DIMENHYDRINATE. [Concomitant]
     Active Substance: DIMENHYDRINATE
  8. PROPOFOL. [Suspect]
     Active Substance: PROPOFOL
     Indication: SEDATION
     Route: 042
  9. MORPHINE SULFATE. [Concomitant]
     Active Substance: MORPHINE SULFATE
  10. CEFAZOLIN [Concomitant]
     Active Substance: CEFAZOLIN
  11. CLINDAMYCIN. [Concomitant]
     Active Substance: CLINDAMYCIN
  12. ACETAMINOPHEN. [Concomitant]
     Active Substance: ACETAMINOPHEN

REACTIONS (6)
  - Endotracheal intubation complication [Unknown]
  - Wrong product administered [Unknown]
  - Hypotension [Unknown]
  - Hot flush [Unknown]
  - Anaesthetic complication [Unknown]
  - Hypoventilation [Unknown]
